FAERS Safety Report 15906306 (Version 1)
Quarter: 2019Q1

REPORT INFORMATION
  Report Type: Report from Study
  Country: US (occurrence: US)
  Receive Date: 20190204
  Receipt Date: 20190204
  Transmission Date: 20190417
  Serious: Yes (Hospitalization, Disabling)
  Sender: FDA-Public Use
  Company Number: US-SAKK-2019SA022950AA

PATIENT
  Age: 58 Year
  Sex: Male

DRUGS (1)
  1. INSULIN GLARGINE [Suspect]
     Active Substance: INSULIN GLARGINE
     Indication: TYPE 2 DIABETES MELLITUS
     Dosage: 34 UNITS IN THE MORNING AND 32 UNITS AT NIGHT, BID
     Route: 058
     Dates: start: 2015

REACTIONS (7)
  - Localised infection [Recovered/Resolved]
  - Peripheral swelling [Unknown]
  - Ligament sprain [Recovered/Resolved]
  - Bone disorder [Unknown]
  - Inappropriate schedule of product administration [Unknown]
  - Pain [Unknown]
  - Limb crushing injury [Recovered/Resolved]

NARRATIVE: CASE EVENT DATE: 2015
